FAERS Safety Report 6767490-0 (Version None)
Quarter: 2010Q2

REPORT INFORMATION
  Report Type: 
  Country: None (occurrence: None)
  Receive Date: 20100614
  Receipt Date: 20100602
  Transmission Date: 20101027
  Serious: Yes (Other)
  Sender: FDA-Public Use
  Company Number: PHHY2010BE35359

PATIENT
  Age: 50 Year
  Sex: Female

DRUGS (1)
  1. ACLASTA [Suspect]
     Dosage: 5 MG
     Route: 042
     Dates: start: 20091101

REACTIONS (5)
  - ARTHRALGIA [None]
  - GINGIVAL DISORDER [None]
  - LOOSE TOOTH [None]
  - OSTEONECROSIS OF JAW [None]
  - TOOTH EXTRACTION [None]
